FAERS Safety Report 6756498-7 (Version None)
Quarter: 2010Q2

REPORT INFORMATION
  Report Type: 
  Country: None (occurrence: None)
  Receive Date: 20100604
  Receipt Date: 20100528
  Transmission Date: 20101027
  Serious: Yes (Death)
  Sender: FDA-Public Use
  Company Number: A0862827A

PATIENT
  Sex: Female

DRUGS (2)
  1. RANITIDINE [Suspect]
     Indication: DRUG USE FOR UNKNOWN INDICATION
     Route: 065
  2. UNSPECIFIED MEDICATIONS [Suspect]

REACTIONS (5)
  - ABDOMINAL DISTENSION [None]
  - ADVERSE DRUG REACTION [None]
  - CARDIOVASCULAR DISORDER [None]
  - DEATH [None]
  - GASTRIC DISORDER [None]
